FAERS Safety Report 7793226-0 (Version None)
Quarter: 2011Q4

REPORT INFORMATION
  Report Type: 
  Country: None (occurrence: None)
  Receive Date: 20111003
  Receipt Date: 20110921
  Transmission Date: 20120403
  Serious: Yes (Hospitalization)
  Sender: FDA-Public Use
  Company Number: US-ELI_LILLY_AND_COMPANY-US201108004439

PATIENT
  Age: 69 Year
  Sex: Male
  Weight: 134.7 kg

DRUGS (23)
  1. LANTUS [Concomitant]
     Dosage: UNK
  2. FLOMAX [Concomitant]
     Dosage: 0.4 MG, QD
  3. COREG [Concomitant]
     Dosage: 12.5 MG, BID
  4. LASIX [Concomitant]
     Dosage: 40 MG, BID
     Route: 042
  5. AMIODARONE HCL [Concomitant]
     Dosage: 200 MG, QD
  6. PAXIL [Concomitant]
     Dosage: 30 MG, EACH EVENING
  7. ALDACTONE [Concomitant]
  8. HUMALOG [Suspect]
     Indication: DIABETES MELLITUS
     Dosage: UNK, PRN
  9. COMBIVENT [Concomitant]
     Indication: WHEEZING
     Dosage: UNK, PRN
  10. NOVOLOG MIX 70/30 [Concomitant]
     Dosage: 60 U, BID
  11. SPIRIVA [Concomitant]
     Dosage: UNK, QD
  12. PROTONIX [Concomitant]
     Dosage: 40 MG, BID
  13. GLIPIZIDE [Concomitant]
     Dosage: 5 MG, QD
  14. LISINOPRIL [Concomitant]
     Dosage: 40 MG, QD
  15. NITROGLYCERIN [Concomitant]
     Dosage: UNK, PRN
     Route: 060
  16. CRESTOR [Concomitant]
     Dosage: 20 MG, EACH EVENING
  17. LASIX [Concomitant]
     Dosage: 80 MG, EACH MORNING
  18. FLONASE [Concomitant]
     Dosage: UNK, QD
  19. ADVAIR DISKUS 100/50 [Concomitant]
     Dosage: UNK, BID
  20. LASIX [Concomitant]
     Dosage: 40 MG, TID
     Route: 042
  21. CLARITIN [Concomitant]
     Dosage: 10 MG, QD
     Route: 048
  22. XANAX [Concomitant]
     Indication: ANXIETY
     Dosage: 0.5 MG, PRN
  23. PLAVIX [Concomitant]
     Dosage: 75 MG, QD

REACTIONS (7)
  - RENAL FAILURE CHRONIC [None]
  - CHRONIC OBSTRUCTIVE PULMONARY DISEASE [None]
  - PICKWICKIAN SYNDROME [None]
  - ANAEMIA OF CHRONIC DISEASE [None]
  - DIABETES MELLITUS INADEQUATE CONTROL [None]
  - PULMONARY HYPERTENSION [None]
  - ACUTE SINUSITIS [None]
